FAERS Safety Report 23080968 (Version 2)
Quarter: 2023Q4

REPORT INFORMATION
  Report Type: Spontaneous
  Country: US (occurrence: US)
  Receive Date: 20231018
  Receipt Date: 20231106
  Transmission Date: 20240110
  Serious: Yes (Other)
  Sender: FDA-Public Use
  Company Number: US-INSUD PHARMA-2310US07173

PATIENT

DRUGS (1)
  1. SLYND [Suspect]
     Active Substance: DROSPIRENONE
     Indication: Endometriosis
     Dosage: UNKNOWN
     Route: 048
     Dates: start: 202309, end: 202310

REACTIONS (5)
  - Ovarian cyst ruptured [Not Recovered/Not Resolved]
  - Heavy menstrual bleeding [Recovered/Resolved]
  - Headache [Recovering/Resolving]
  - Nausea [Recovered/Resolved]
  - Off label use [Unknown]

NARRATIVE: CASE EVENT DATE: 20230101
